FAERS Safety Report 24685472 (Version 1)
Quarter: 2024Q4

REPORT INFORMATION
  Report Type: Spontaneous
  Country: US (occurrence: US)
  Receive Date: 20241202
  Receipt Date: 20241202
  Transmission Date: 20250115
  Serious: Yes (Other)
  Sender: TEVA
  Company Number: US-TEVA-VS-3270184

PATIENT
  Sex: Male

DRUGS (1)
  1. AUSTEDO [Suspect]
     Active Substance: DEUTETRABENAZINE
     Indication: Product used for unknown indication
     Route: 065
     Dates: start: 20241108, end: 20241114

REACTIONS (6)
  - Hypomania [Unknown]
  - Tremor [Unknown]
  - Insomnia [Unknown]
  - Impulsive behaviour [Unknown]
  - Mood swings [Unknown]
  - Energy increased [Unknown]

NARRATIVE: CASE EVENT DATE: 20241101
